FAERS Safety Report 24694037 (Version 1)
Quarter: 2024Q4

REPORT INFORMATION
  Report Type: Spontaneous
  Country: US (occurrence: US)
  Receive Date: 20241204
  Receipt Date: 20241204
  Transmission Date: 20250115
  Serious: No
  Sender: ABBVIE
  Company Number: US-ABBVIE-6027127

PATIENT
  Sex: Female

DRUGS (1)
  1. BOTOX [Suspect]
     Active Substance: ONABOTULINUMTOXINA
     Indication: Migraine
     Dosage: TIME INTERVAL: AS NECESSARY
     Route: 030

REACTIONS (5)
  - Ear pain [Unknown]
  - Pain in jaw [Unknown]
  - Hyperaesthesia [Unknown]
  - Food allergy [Unknown]
  - Oral pain [Unknown]

NARRATIVE: CASE EVENT DATE: 20241122
